FAERS Safety Report 16952987 (Version 2)
Quarter: 2020Q2

REPORT INFORMATION
  Report Type: Report from Study
  Country: US (occurrence: US)
  Receive Date: 20191023
  Receipt Date: 20200611
  Transmission Date: 20200713
  Serious: Yes (Death, Life-Threatening, Hospitalization, Other)
  Sender: FDA-Public Use
  Company Number: NVSC2019US013314

PATIENT
  Age: 45 Year
  Sex: Female
  Weight: 61.69 kg

DRUGS (2)
  1. COSENTYX [Suspect]
     Active Substance: SECUKINUMAB
     Dosage: 300 MG, QMO
     Route: 065
     Dates: start: 20150811
  2. COSENTYX [Suspect]
     Active Substance: SECUKINUMAB
     Indication: PSORIASIS
     Dosage: 300 MG, QMO
     Route: 065
     Dates: start: 20150424

REACTIONS (3)
  - Peripheral swelling [Fatal]
  - Cutaneous T-cell lymphoma [Fatal]
  - Pain in extremity [Fatal]

NARRATIVE: CASE EVENT DATE: 20180130
